FAERS Safety Report 7965043-X (Version None)
Quarter: 2011Q4

REPORT INFORMATION
  Report Type: 
  Country: None (occurrence: None)
  Receive Date: 20111206
  Receipt Date: 20111206
  Transmission Date: 20120403
  Serious: Yes (Other)
  Sender: FDA-Public Use
  Company Number: None

PATIENT
  Age: 11 Year
  Sex: Male
  Weight: 40.8237 kg

DRUGS (2)
  1. LEXAPRO [Suspect]
     Indication: DEPRESSION
     Dosage: 5MG HS PO 047
     Route: 048
     Dates: start: 20111116, end: 20111130
  2. LEXAPRO [Suspect]
     Indication: ANXIETY
     Dosage: 5MG HS PO 047
     Route: 048
     Dates: start: 20111116, end: 20111130

REACTIONS (1)
  - HALLUCINATION, AUDITORY [None]
